FAERS Safety Report 4606806-8 (Version None)
Quarter: 2005Q1

REPORT INFORMATION
  Report Type: 
  Country: None (occurrence: None)
  Receive Date: 20050310
  Receipt Date: 20050225
  Transmission Date: 20050727
  Serious: Yes (Other)
  Sender: FDA-Public Use
  Company Number: 2005-BP-03450BP

PATIENT
  Age: 53 Year
  Sex: Male
  Weight: 136 kg

DRUGS (1)
  1. DIPYRIDAMOLE [Suspect]
     Indication: CARDIAC STRESS TEST
     Dosage: 60.1 MG (SEE TEXT, 10MG/2ML)
     Dates: start: 20041213

REACTIONS (2)
  - INFUSION SITE PAIN [None]
  - PHARMACEUTICAL PRODUCT COMPLAINT [None]
